FAERS Safety Report 9781045 (Version 3)
Quarter: 2014Q1

REPORT INFORMATION
  Report Type: Spontaneous
  Country: US (occurrence: US)
  Receive Date: 20131224
  Receipt Date: 20140228
  Transmission Date: 20141002
  Serious: Yes (Other)
  Sender: FDA-Public Use
  Company Number: US-ASTRAZENECA-2013SE91155

PATIENT
  Sex: Female

DRUGS (14)
  1. ZESTRIL [Suspect]
     Route: 048
  2. LIDOCAINE [Suspect]
     Route: 065
  3. AMITRIPTYLINE [Suspect]
     Route: 065
  4. AMITRIPTYLINE [Suspect]
     Route: 065
  5. ESTRADIOL [Concomitant]
  6. ACIPHEX [Concomitant]
  7. LYRICA [Concomitant]
  8. ASPIRIN [Concomitant]
  9. CENTRUM SILVER [Concomitant]
     Dosage: DAILY
  10. VIT. D [Concomitant]
  11. VIT.E [Concomitant]
  12. VIT.C [Concomitant]
  13. CALCIUM [Concomitant]
  14. L-LYSINE [Concomitant]
     Indication: ORAL HERPES

REACTIONS (7)
  - Head injury [Unknown]
  - Fatigue [Unknown]
  - Syncope [Unknown]
  - Drug intolerance [Unknown]
  - Dry mouth [Unknown]
  - Somnolence [Unknown]
  - Drug hypersensitivity [Unknown]
